FAERS Safety Report 15733555 (Version 2)
Quarter: 2019Q1

REPORT INFORMATION
  Report Type: Report from Study
  Country: US (occurrence: US)
  Receive Date: 20181218
  Receipt Date: 20190108
  Transmission Date: 20190417
  Serious: Yes (Other)
  Sender: FDA-Public Use
  Company Number: PHEH2018US052152

PATIENT
  Sex: Female
  Weight: 137.87 kg

DRUGS (2)
  1. COSENTYX [Suspect]
     Active Substance: SECUKINUMAB
     Indication: PSORIASIS
     Route: 058
     Dates: start: 20180911
  2. COSENTYX [Suspect]
     Active Substance: SECUKINUMAB
     Indication: PSORIATIC ARTHROPATHY

REACTIONS (10)
  - Drug ineffective [Unknown]
  - Rhinorrhoea [Unknown]
  - Psoriatic arthropathy [Unknown]
  - Ear infection [Unknown]
  - Depression [Unknown]
  - Pharyngitis [Unknown]
  - Psoriasis [Unknown]
  - Peripheral swelling [Unknown]
  - Pruritus [Unknown]
  - Macule [Unknown]
